FAERS Safety Report 16407697 (Version 1)
Quarter: 2019Q2

REPORT INFORMATION
  Report Type: Spontaneous
  Country: ES (occurrence: ES)
  Receive Date: 20190609
  Receipt Date: 20190609
  Transmission Date: 20190711
  Serious: Yes (Other)
  Sender: FDA-Public Use
  Company Number: PHHY2019ES132182

PATIENT
  Age: 1 Year
  Sex: Male

DRUGS (6)
  1. ISONIAZID. [Suspect]
     Active Substance: ISONIAZID
     Indication: PULMONARY TUBERCULOSIS
     Route: 065
  2. ETHAMBUTOL [Suspect]
     Active Substance: ETHAMBUTOL HYDROCHLORIDE
     Indication: PULMONARY TUBERCULOSIS
     Route: 065
  3. STREPTOMYCIN [Suspect]
     Active Substance: STREPTOMYCIN\STREPTOMYCIN SULFATE
     Indication: PULMONARY TUBERCULOSIS
     Route: 065
  4. RIFAMPICIN [Suspect]
     Active Substance: RIFAMPIN
     Indication: PULMONARY TUBERCULOSIS
     Route: 065
  5. PYRAZINAMIDE. [Suspect]
     Active Substance: PYRAZINAMIDE
     Indication: PULMONARY TUBERCULOSIS
     Route: 065
  6. AMIKACIN. [Suspect]
     Active Substance: AMIKACIN
     Indication: PULMONARY TUBERCULOSIS
     Route: 065

REACTIONS (1)
  - Pulmonary tuberculosis [Recovering/Resolving]
